FAERS Safety Report 6343418-2 (Version None)
Quarter: 2009Q3

REPORT INFORMATION
  Report Type: 
  Country: None (occurrence: None)
  Receive Date: 20090908
  Receipt Date: 20090903
  Transmission Date: 20100115
  Serious: Yes (Life-Threatening)
  Sender: FDA-Public Use
  Company Number: GB-WYE-G04363209

PATIENT
  Age: 63 Year
  Sex: Female
  Weight: 95 kg

DRUGS (4)
  1. VENLAFAXINE HYDROCHLORIDE [Suspect]
     Indication: DEPRESSION
     Route: 048
     Dates: start: 20020710, end: 20070801
  2. CO-CODAMOL [Concomitant]
     Indication: PAIN
     Dosage: TAKE AS NECESSARY
     Route: 048
     Dates: start: 19990601
  3. RABEPRAZOLE SODIUM [Concomitant]
     Indication: DYSPEPSIA
     Route: 048
     Dates: start: 20050501
  4. ATORVASTATIN [Concomitant]
     Indication: HYPERCHOLESTEROLAEMIA
     Dosage: 20MG (FREQUENCY UNKNOWN)
     Route: 048
     Dates: start: 20070501

REACTIONS (2)
  - LEFT VENTRICULAR DYSFUNCTION [None]
  - LEFT VENTRICULAR FAILURE [None]
